FAERS Safety Report 23575430 (Version 5)
Quarter: 2024Q2

REPORT INFORMATION
  Report Type: Spontaneous
  Country: US (occurrence: US)
  Receive Date: 20240228
  Receipt Date: 20240430
  Transmission Date: 20240716
  Serious: No
  Sender: FDA-Public Use
  Company Number: US-PFIZER INC-202400039331

PATIENT
  Age: 15 Year
  Sex: Male
  Weight: 53.515 kg

DRUGS (1)
  1. GENOTROPIN [Suspect]
     Active Substance: SOMATROPIN
     Dosage: UNK

REACTIONS (6)
  - Drug dose omission by device [Unknown]
  - Device use issue [Unknown]
  - Wrong technique in device usage process [Unknown]
  - Poor quality device used [Unknown]
  - Device leakage [Unknown]
  - Device issue [Unknown]
